FAERS Safety Report 9812602 (Version 1)
Quarter: 2014Q1

REPORT INFORMATION
  Report Type: Other
  Country: US (occurrence: US)
  Receive Date: 20140113
  Receipt Date: 20140113
  Transmission Date: 20141002
  Serious: Yes (Other)
  Sender: FDA-Public Use
  Company Number: US-SHIRE-ALL1-2014-00195

PATIENT
  Age: 18 Year
  Sex: Male

DRUGS (2)
  1. VPRIV [Suspect]
     Indication: GAUCHER^S DISEASE
     Dosage: 3600 IU, OTHER (BIMONTHLY)
     Route: 041
     Dates: start: 20101007
  2. VPRIV [Suspect]
     Dosage: 4400 IU, 1X/2WKS
     Route: 041

REACTIONS (2)
  - Coeliac disease [Unknown]
  - Pain in extremity [Not Recovered/Not Resolved]
